FAERS Safety Report 6456195-1 (Version None)
Quarter: 2009Q4

REPORT INFORMATION
  Report Type: 
  Country: None (occurrence: None)
  Receive Date: 20091125
  Receipt Date: 20091111
  Transmission Date: 20100525
  Serious: Yes (Hospitalization, Other)
  Sender: FDA-Public Use
  Company Number: US-ELI_LILLY_AND_COMPANY-US200911002947

PATIENT
  Sex: Female

DRUGS (4)
  1. FORTEO [Suspect]
     Dosage: UNK, UNK
     Dates: start: 20091001, end: 20091102
  2. FORTEO [Suspect]
     Dates: start: 20091107
  3. IMITREX [Concomitant]
     Dosage: UNK, AS NEEDED
     Route: 048
  4. IMITREX [Concomitant]
     Dosage: UNK, AS NEEDED
     Route: 058

REACTIONS (2)
  - HAEMORRHAGE [None]
  - INTESTINAL OBSTRUCTION [None]
